FAERS Safety Report 9278886 (Version 1)
Quarter: 2013Q2

REPORT INFORMATION
  Report Type: Spontaneous
  Country: FR (occurrence: FR)
  Receive Date: 20130508
  Receipt Date: 20130508
  Transmission Date: 20140414
  Serious: Yes (Hospitalization, Other)
  Sender: FDA-Public Use
  Company Number: FR-ABBOTT-13P-056-1085732-00

PATIENT
  Age: 64 Year
  Sex: Female

DRUGS (7)
  1. KALETRA TABLETS 200/50 [Suspect]
     Indication: PROPHYLAXIS AGAINST HIV INFECTION
     Dosage: 200MG/50MG
     Route: 048
     Dates: start: 20121224, end: 20130124
  2. TRUVADA [Suspect]
     Indication: PROPHYLAXIS AGAINST HIV INFECTION
     Dosage: 200MG/245MG
     Route: 048
     Dates: start: 20121224, end: 20130124
  3. LEVOTHYROX [Concomitant]
     Indication: PRODUCT USED FOR UNKNOWN INDICATION
  4. LIPANTHYL [Concomitant]
     Indication: PRODUCT USED FOR UNKNOWN INDICATION
  5. TEMERIT [Concomitant]
     Indication: PRODUCT USED FOR UNKNOWN INDICATION
  6. FEMARA [Concomitant]
     Indication: PRODUCT USED FOR UNKNOWN INDICATION
  7. EUROBIOL [Concomitant]
     Indication: PRODUCT USED FOR UNKNOWN INDICATION

REACTIONS (3)
  - Renal failure acute [Unknown]
  - Pancreatitis acute [Not Recovered/Not Resolved]
  - Lipase increased [Not Recovered/Not Resolved]
